FAERS Safety Report 18687397 (Version 1)
Quarter: 2020Q4

REPORT INFORMATION
  Report Type: Spontaneous
  Country: US (occurrence: US)
  Receive Date: 20201231
  Receipt Date: 20201231
  Transmission Date: 20210114
  Serious: No
  Sender: FDA-Public Use
  Company Number: US-SA-2020SA375166

PATIENT

DRUGS (3)
  1. TOUJEO [Suspect]
     Active Substance: INSULIN GLARGINE
     Dosage: 12 IU
     Route: 065
  2. TOUJEO [Suspect]
     Active Substance: INSULIN GLARGINE
     Dosage: 9 IU
     Route: 065
     Dates: start: 202012
  3. TOUJEO [Suspect]
     Active Substance: INSULIN GLARGINE
     Dosage: 16 IU
     Route: 065

REACTIONS (3)
  - Insomnia [Recovering/Resolving]
  - Nervousness [Unknown]
  - Blood glucose decreased [Recovering/Resolving]
